FAERS Safety Report 9996501 (Version 2)
Quarter: 2014Q1

REPORT INFORMATION
  Report Type: Spontaneous
  Country: IT (occurrence: IT)
  Receive Date: 20140311
  Receipt Date: 20140319
  Transmission Date: 20141002
  Serious: Yes (Death)
  Sender: FDA-Public Use
  Company Number: IT-SA-2014SA027612

PATIENT
  Age: 58 Year
  Sex: Female
  Weight: 88 kg

DRUGS (3)
  1. FUROSEMIDE [Suspect]
     Indication: OEDEMA PERIPHERAL
     Route: 048
     Dates: start: 20121023, end: 20130704
  2. INSULIN LISPRO [Concomitant]
  3. INSULIN GLULISINE [Concomitant]

REACTIONS (7)
  - Renal failure [Fatal]
  - Arthralgia [Fatal]
  - Nausea [Fatal]
  - Vomiting [Fatal]
  - Dyspnoea [Fatal]
  - Blood creatinine increased [Fatal]
  - Blood urea increased [Fatal]
